FAERS Safety Report 24242212 (Version 1)
Quarter: 2024Q3

REPORT INFORMATION
  Report Type: Spontaneous
  Country: US (occurrence: None)
  Receive Date: 20240822
  Receipt Date: 20240822
  Transmission Date: 20241016
  Serious: No
  Sender: Public
  Company Number: None

PATIENT
  Sex: Female

DRUGS (3)
  1. HUMIRA [Suspect]
     Active Substance: ADALIMUMAB
     Indication: Rheumatoid arthritis
     Dates: start: 20240709
  2. AMLODIPINE [Concomitant]
  3. DULOXETINE [Concomitant]

REACTIONS (2)
  - Alopecia [None]
  - Therapy interrupted [None]
